FAERS Safety Report 5244632-X (Version None)
Quarter: 2007Q1

REPORT INFORMATION
  Report Type: 
  Country: None (occurrence: None)
  Receive Date: 20061201
  Receipt Date: 20060916
  Transmission Date: 20070707
  Serious: No
  Sender: FDA-Public Use
  Company Number: 2006PV014528

PATIENT
  Age: 42 Year
  Sex: Male
  Weight: 143.7903 kg

DRUGS (10)
  1. BYETTA [Suspect]
     Indication: DIABETES MELLITUS NON-INSULIN-DEPENDENT
     Dosage: SEE IMAGE
     Route: 058
     Dates: start: 20060505, end: 20060601
  2. BYETTA [Suspect]
     Indication: DIABETES MELLITUS NON-INSULIN-DEPENDENT
     Dosage: SEE IMAGE
     Route: 058
     Dates: start: 20060602, end: 20060601
  3. BYETTA [Suspect]
     Indication: DIABETES MELLITUS NON-INSULIN-DEPENDENT
     Dosage: SEE IMAGE
     Route: 058
     Dates: start: 20060601
  4. BYETTA [Suspect]
  5. BYETTA [Suspect]
  6. METFORMIN [Concomitant]
  7. GLIPIZIDE [Concomitant]
  8. GLYBURIDE [Concomitant]
  9. IBUPROFEN [Concomitant]
  10. PRILOSEC [Concomitant]

REACTIONS (17)
  - ABDOMINAL DISTENSION [None]
  - ABDOMINAL PAIN UPPER [None]
  - ANXIETY [None]
  - BLOOD GLUCOSE DECREASED [None]
  - DIARRHOEA [None]
  - FEELING JITTERY [None]
  - FLATULENCE [None]
  - GOUT [None]
  - INJECTION SITE BRUISING [None]
  - INJECTION SITE HAEMORRHAGE [None]
  - INJECTION SITE PAIN [None]
  - MYALGIA [None]
  - NAUSEA [None]
  - PAIN [None]
  - SWELLING [None]
  - THERAPEUTIC RESPONSE UNEXPECTED [None]
  - WEIGHT DECREASED [None]
